FAERS Safety Report 4376981-1 (Version None)
Quarter: 2004Q2

REPORT INFORMATION
  Report Type: 
  Country: None (occurrence: None)
  Receive Date: 20040614
  Receipt Date: 20020516
  Transmission Date: 20050107
  Serious: Yes (Hospitalization, Disabling)
  Sender: FDA-Public Use
  Company Number: US-MERCK-0205USA02106

PATIENT
  Age: 54 Year
  Sex: Male
  Weight: 77 kg

DRUGS (3)
  1. ATENOLOL [Concomitant]
     Route: 065
  2. SOMA [Concomitant]
     Route: 065
  3. VIOXX [Suspect]
     Indication: PAIN IN EXTREMITY
     Route: 048
     Dates: start: 20010301, end: 20011001

REACTIONS (29)
  - AGORAPHOBIA [None]
  - ANGINA PECTORIS [None]
  - ANXIETY [None]
  - ANXIETY DISORDER [None]
  - ARTHRALGIA [None]
  - CATHETER SITE PAIN [None]
  - CHRONIC FATIGUE SYNDROME [None]
  - DEPRESSION [None]
  - DIASTOLIC DYSFUNCTION [None]
  - DISTURBANCE IN ATTENTION [None]
  - DYSPNOEA [None]
  - GOUT [None]
  - HIGH DENSITY LIPOPROTEIN DECREASED [None]
  - HYPERTENSION [None]
  - HYPOAESTHESIA [None]
  - HYPOKINESIA [None]
  - INJURY [None]
  - INSOMNIA [None]
  - JOINT SWELLING [None]
  - LYMPHADENOPATHY [None]
  - MYOCARDIAL INFARCTION [None]
  - PAIN IN EXTREMITY [None]
  - PANIC DISORDER [None]
  - PERSONALITY DISORDER [None]
  - PUNCTURE SITE REACTION [None]
  - RECTAL HAEMORRHAGE [None]
  - SKIN NODULE [None]
  - SOCIAL PHOBIA [None]
  - VENTRICULAR DYSFUNCTION [None]
